FAERS Safety Report 24739217 (Version 1)
Quarter: 2024Q4

REPORT INFORMATION
  Report Type: Spontaneous
  Country: CN (occurrence: CN)
  Receive Date: 20241216
  Receipt Date: 20241216
  Transmission Date: 20250115
  Serious: Yes (Other)
  Sender: PFIZER
  Company Number: CN-PFIZER INC-PV202400158087

PATIENT
  Age: 43 Year
  Sex: Female
  Weight: 74 kg

DRUGS (2)
  1. PACLITAXEL [Suspect]
     Active Substance: PACLITAXEL
     Indication: Cervix carcinoma
     Dosage: 270 MG, 1X/DAY
     Route: 041
     Dates: start: 20181229, end: 20181229
  2. LOBAPLATIN [Suspect]
     Active Substance: LOBAPLATIN
     Indication: Cervix carcinoma
     Dosage: 50 MG, 1X/DAY
     Route: 041
     Dates: start: 20181229, end: 20181229

REACTIONS (2)
  - Immunosuppression [Recovered/Resolved]
  - Off label use [Unknown]

NARRATIVE: CASE EVENT DATE: 20181229
